FAERS Safety Report 4324580-X (Version None)
Quarter: 2004Q1

REPORT INFORMATION
  Report Type: 
  Country: None (occurrence: None)
  Receive Date: 20040322
  Receipt Date: 20040311
  Transmission Date: 20041129
  Serious: Yes (Life-Threatening)
  Sender: FDA-Public Use
  Company Number: FR-JNJFOC-20040302745

PATIENT
  Age: 78 Year
  Sex: Female
  Weight: 53 kg

DRUGS (3)
  1. REMICADE [Suspect]
     Indication: RHEUMATOID ARTHRITIS
     Dosage: INTRAVENOUS
     Route: 042
     Dates: start: 20020208, end: 20030116
  2. CORTANCY (PREDNISONE) [Suspect]
     Indication: RHEUMATOID ARTHRITIS
     Dosage: 10 MG, 1 IN 1 DAY, ORAL
     Route: 048
  3. METHOTREXATE [Suspect]
     Indication: RHEUMATOID ARTHRITIS
     Dosage: 15 MG, 1 IN 1 WEEK, INTRA-MUSCULAR
     Route: 030

REACTIONS (2)
  - LYMPHADENOPATHY [None]
  - TONGUE NEOPLASM MALIGNANT STAGE UNSPECIFIED [None]
